FAERS Safety Report 17102736 (Version 1)
Quarter: 2019Q4

REPORT INFORMATION
  Report Type: Spontaneous
  Country: PL (occurrence: PL)
  Receive Date: 20191203
  Receipt Date: 20191203
  Transmission Date: 20200122
  Serious: Yes (Hospitalization)
  Sender: FDA-Public Use
  Company Number: PL-SUN PHARMACEUTICAL INDUSTRIES LTD-2019R1-229055

PATIENT
  Age: 51 Year
  Sex: Female

DRUGS (1)
  1. LITHIUM. [Suspect]
     Active Substance: LITHIUM
     Indication: PRODUCT USED FOR UNKNOWN INDICATION
     Dosage: UNK
     Route: 065

REACTIONS (8)
  - Hyperthyroidism [Unknown]
  - Toxicity to various agents [Unknown]
  - Polyuria [Unknown]
  - Hypercalcaemia [Unknown]
  - Polydipsia [Unknown]
  - Hypophosphataemia [Unknown]
  - Weight decreased [Unknown]
  - Hypernatraemia [Unknown]
